FAERS Safety Report 13530766 (Version 1)
Quarter: 2017Q2

REPORT INFORMATION
  Report Type: Spontaneous
  Country: US (occurrence: US)
  Receive Date: 20170509
  Receipt Date: 20170509
  Transmission Date: 20170830
  Serious: Yes (Hospitalization)
  Sender: FDA-Public Use
  Company Number: None

PATIENT
  Age: 69 Year
  Sex: Female
  Weight: 73.35 kg

DRUGS (5)
  1. COREG [Concomitant]
     Active Substance: CARVEDILOL
  2. JARDIANCE [Suspect]
     Active Substance: EMPAGLIFLOZIN
     Indication: GLYCOSYLATED HAEMOGLOBIN INCREASED
     Dosage: ?          QUANTITY:1 TABLET(S);?
     Route: 048
     Dates: start: 20170405, end: 20170425
  3. PREVACID [Concomitant]
     Active Substance: LANSOPRAZOLE
  4. BABY ASPIRIN [Concomitant]
     Active Substance: ASPIRIN
  5. LIVALO [Concomitant]
     Active Substance: PITAVASTATIN CALCIUM

REACTIONS (6)
  - Renal failure [None]
  - Vomiting [None]
  - Urine ketone body present [None]
  - Weight decreased [None]
  - Gastroenteritis [None]
  - Glycosylated haemoglobin increased [None]

NARRATIVE: CASE EVENT DATE: 20170426
